FAERS Safety Report 5735896-4 (Version None)
Quarter: 2008Q2

REPORT INFORMATION
  Report Type: 
  Country: None (occurrence: None)
  Receive Date: 20080509
  Receipt Date: 20080425
  Transmission Date: 20081010
  Serious: No
  Sender: FDA-Public Use
  Company Number: TPA2008A00587

PATIENT
  Sex: Female

DRUGS (1)
  1. ACTOS [Suspect]
     Indication: DRUG USE FOR UNKNOWN INDICATION
     Dosage: 15 MG, 1 IN 1D, PER ORAL
     Route: 048

REACTIONS (2)
  - INTERCEPTED MEDICATION ERROR [None]
  - PHARMACEUTICAL PRODUCT COMPLAINT [None]
